FAERS Safety Report 8400219-9 (Version None)
Quarter: 2012Q2

REPORT INFORMATION
  Report Type: 
  Country: None (occurrence: None)
  Receive Date: 20120531
  Receipt Date: 20120523
  Transmission Date: 20120825
  Serious: Yes (Hospitalization, Other)
  Sender: FDA-Public Use
  Company Number: JP-PFIZER INC-2012124117

PATIENT
  Age: 43 Year
  Sex: Male
  Weight: 77 kg

DRUGS (1)
  1. LYRICA [Suspect]
     Indication: NEURALGIA
     Dosage: 75 MG, 2X/DAY
     Route: 048
     Dates: start: 20110820

REACTIONS (8)
  - CARDIAC FAILURE [None]
  - NEPHRITIC SYNDROME [None]
  - GENERALISED OEDEMA [None]
  - ISCHAEMIC CARDIOMYOPATHY [None]
  - CARDIOMEGALY [None]
  - PULMONARY OEDEMA [None]
  - PLEURAL EFFUSION [None]
  - DIABETIC CARDIOMYOPATHY [None]
